FAERS Safety Report 6643454-2 (Version None)
Quarter: 2010Q1

REPORT INFORMATION
  Report Type: 
  Country: None (occurrence: None)
  Receive Date: 20100319
  Receipt Date: 20100308
  Transmission Date: 20100710
  Serious: Yes (Death)
  Sender: FDA-Public Use
  Company Number: GB-WATSON-2010-02828

PATIENT
  Age: 40 Year
  Sex: Female

DRUGS (3)
  1. CLOMIPRAMINE HYDROCHLORIDE (WATSON LABORATORIES) [Suspect]
     Indication: DEPRESSION
     Dosage: UNK
  2. AMISULPRIDE [Suspect]
     Indication: DEPRESSION
     Dosage: UNK
  3. LITHIUM [Suspect]
     Indication: DEPRESSION
     Dosage: UNK

REACTIONS (5)
  - CEREBRAL HAEMORRHAGE [None]
  - NEUROLEPTIC MALIGNANT SYNDROME [None]
  - RENAL FAILURE ACUTE [None]
  - RHABDOMYOLYSIS [None]
  - WITHDRAWAL SYNDROME [None]
